FAERS Safety Report 10368140 (Version 1)
Quarter: 2014Q1

REPORT INFORMATION
  Report Type: Spontaneous
  Country: US (occurrence: None)
  Receive Date: 20140306
  Receipt Date: 20140306
  Transmission Date: 20141002
  Serious: Yes (Hospitalization)
  Sender: FDA-Public Use
  Company Number: 163-21880-13023553

PATIENT
  Age: 66 Year
  Sex: Female
  Weight: 75.3 kg

DRUGS (2)
  1. REVLIMID [Suspect]
     Indication: PLASMA CELL MYELOMA
     Dosage: 25 MG, 21 IN 21 D, PO
     Route: 048
     Dates: start: 201208
  2. VELCADE (BORTEZOMIB) [Concomitant]

REACTIONS (2)
  - Hypersensitivity [None]
  - Swelling [None]
